FAERS Safety Report 10340187 (Version 1)
Quarter: 2014Q3

REPORT INFORMATION
  Report Type: Spontaneous
  Country: US (occurrence: None)
  Receive Date: 20140722
  Receipt Date: 20140722
  Transmission Date: 20150326
  Serious: Yes (Other)
  Sender: FDA-Public Use
  Company Number: 1286039

PATIENT
  Age: 60 Year
  Sex: Female
  Weight: 54.89 kg

DRUGS (3)
  1. IBUPROFEN. [Concomitant]
     Active Substance: IBUPROFEN
  2. HORMONE REPLACEMENT THERAPY [Concomitant]
     Active Substance: UNSPECIFIED INGREDIENT
  3. ACLARO PD HYDROQUINONE [Suspect]
     Active Substance: HYDROQUINONE
     Indication: SKIN DISCOLOURATION

REACTIONS (3)
  - Application site erythema [None]
  - Product colour issue [None]
  - Application site inflammation [None]

NARRATIVE: CASE EVENT DATE: 20131118
